FAERS Safety Report 19618179 (Version 2)
Quarter: 2021Q3

REPORT INFORMATION
  Report Type: Report from Study
  Country: KR (occurrence: KR)
  Receive Date: 20210728
  Receipt Date: 20210820
  Transmission Date: 20211014
  Serious: Yes (Hospitalization)
  Sender: FDA-Public Use
  Company Number: KR-CELLTRION INC.-2021KR009883

PATIENT

DRUGS (28)
  1. HERZUMA [Suspect]
     Active Substance: TRASTUZUMAB-PKRB
     Indication: BILE DUCT CANCER
     Dosage: 369 MG, CYCLE 1
     Route: 042
     Dates: start: 20210511
  2. FERBON 1% [Suspect]
     Active Substance: LEUCOVORIN CALCIUM
     Dosage: 330 MG (200MG/M2=200*1.65) + 5%DW 100ML
     Route: 042
     Dates: start: 20210706
  3. DEXAMETHASONE. [Concomitant]
     Active Substance: DEXAMETHASONE
     Dosage: 5 MG, ONCE
     Route: 042
     Dates: start: 20210622, end: 20210622
  4. HERZUMA [Suspect]
     Active Substance: TRASTUZUMAB-PKRB
     Dosage: CYCLE 6, 246MG(4MG*KG=4MG*61.5KG) EVERY 2 WEEKS
     Route: 042
     Dates: start: 20210721
  5. ALOXI [Concomitant]
     Active Substance: PALONOSETRON HYDROCHLORIDE
     Dosage: 1 VIAL, ONCE
     Route: 042
     Dates: start: 20210608, end: 20210608
  6. ALOXI [Concomitant]
     Active Substance: PALONOSETRON HYDROCHLORIDE
     Dosage: 1 VIAL, ONCE
     Route: 042
     Dates: start: 20210706, end: 20210706
  7. DEXAMETHASONE. [Concomitant]
     Active Substance: DEXAMETHASONE
     Dosage: 5 MG, ONCE
     Route: 042
     Dates: start: 20210525, end: 20210525
  8. DEXAMETHASONE. [Concomitant]
     Active Substance: DEXAMETHASONE
     Dosage: 5 MG, ONCE
     Route: 042
     Dates: start: 20210706, end: 20210706
  9. AMOSARTAN [Concomitant]
     Indication: HYPERTENSION
     Dosage: 1 TAB, QD
     Route: 048
     Dates: start: 2020
  10. ALOXI [Concomitant]
     Active Substance: PALONOSETRON HYDROCHLORIDE
     Dosage: 1 VIAL, ONCE
     Route: 042
     Dates: start: 20210622, end: 20210622
  11. HERZUMA [Suspect]
     Active Substance: TRASTUZUMAB-PKRB
     Dosage: CYCLE 4, 246MG(4MG*KG=4MG*61.5KG) EVERY 2 WEEKS
     Route: 042
     Dates: start: 20210622
  12. SAMA TANTUM GARGLE [Concomitant]
     Active Substance: BENZYDAMINE HYDROCHLORIDE
     Indication: PROPHYLAXIS
     Dosage: 1 BOTTLE, PRN
     Route: 048
     Dates: start: 20210527, end: 20210706
  13. HERZUMA [Suspect]
     Active Substance: TRASTUZUMAB-PKRB
     Dosage: CYCLE 3, 246MG(4MG*KG=4MG*61.5KG) EVERY 2 WEEKS
     Route: 042
     Dates: start: 20210608
  14. 5?FU [Suspect]
     Active Substance: FLUOROURACIL
     Dosage: 3960 MG (2400MG/M2=2400MG*1.65)+ 5%DW 1000ML
     Route: 042
     Dates: start: 20210706
  15. ALOXI [Concomitant]
     Active Substance: PALONOSETRON HYDROCHLORIDE
     Dosage: 1 VIAL, ONCE
     Route: 042
     Dates: start: 20210721, end: 20210721
  16. OXALITIN [Suspect]
     Active Substance: OXALIPLATIN
     Dosage: 140.2 MG (85MG/M2=85*1.65)+5%DW200ML
     Route: 042
     Dates: start: 20210706
  17. 5?FU [Suspect]
     Active Substance: FLUOROURACIL
     Indication: BILE DUCT CANCER
     Dosage: 660 MG (400MG/M2=400MG*1.65)+5%DW100ML
     Route: 040
     Dates: start: 20210511
  18. FERBON 1% [Suspect]
     Active Substance: LEUCOVORIN CALCIUM
     Indication: BILE DUCT CANCER
     Dosage: 330 MG (200MG/M2=200*1.65) + 5%DW 100ML
     Route: 042
     Dates: start: 20210511
  19. HERZUMA [Suspect]
     Active Substance: TRASTUZUMAB-PKRB
     Dosage: CYCLE 2, 246MG(4MG*KG=4MG*61.5KG) EVERY 2 WEEKS
     Route: 042
     Dates: start: 20210525
  20. HERZUMA [Suspect]
     Active Substance: TRASTUZUMAB-PKRB
     Dosage: 246 MG, CYCLE 5 EVERY 2 WEEKS
     Route: 042
     Dates: start: 20210706
  21. OXALITIN [Suspect]
     Active Substance: OXALIPLATIN
     Indication: BILE DUCT CANCER
     Dosage: 140.2 MG (85MG/M2=85*1.65)+5%DW200ML
     Route: 042
     Dates: start: 20210511
  22. 5?FU [Suspect]
     Active Substance: FLUOROURACIL
     Indication: BILE DUCT CANCER
     Dosage: 3960 MG (2400MG/M2=2400MG*1.65)+ 5%DW 1000ML
     Route: 042
     Dates: start: 20210511
  23. ALOXI [Concomitant]
     Active Substance: PALONOSETRON HYDROCHLORIDE
     Dosage: 1 VIAL, ONCE
     Route: 042
     Dates: start: 20210525, end: 20210525
  24. DEXAMETHASONE. [Concomitant]
     Active Substance: DEXAMETHASONE
     Dosage: 5 MG, ONCE
     Route: 042
     Dates: start: 20210721, end: 20210721
  25. 5?FU [Suspect]
     Active Substance: FLUOROURACIL
     Dosage: 660 MG (400MG/M2=400MG*1.65)+5%DW100ML
     Route: 040
     Dates: start: 20210706
  26. ALOXI [Concomitant]
     Active Substance: PALONOSETRON HYDROCHLORIDE
     Indication: PROPHYLAXIS
     Dosage: 1 VIAL, ONCE
     Route: 042
     Dates: start: 20210511, end: 20210511
  27. DEXAMETHASONE. [Concomitant]
     Active Substance: DEXAMETHASONE
     Indication: PROPHYLAXIS
     Dosage: 5 ML, ONCE
     Route: 042
     Dates: start: 20210511, end: 20210511
  28. DEXAMETHASONE. [Concomitant]
     Active Substance: DEXAMETHASONE
     Dosage: 5 MG, ONCE
     Route: 042
     Dates: start: 20210608, end: 20210608

REACTIONS (2)
  - Off label use [Unknown]
  - Neutrophil count decreased [Recovered/Resolved]

NARRATIVE: CASE EVENT DATE: 20210719
